FAERS Safety Report 5411392-9 (Version None)
Quarter: 2007Q3

REPORT INFORMATION
  Report Type: 
  Country: None (occurrence: None)
  Receive Date: 20070810
  Receipt Date: 20070723
  Transmission Date: 20080115
  Serious: Yes (Hospitalization)
  Sender: FDA-Public Use
  Company Number: FR-ASTRAZENECA-2007SE04304

PATIENT
  Age: 74 Year
  Sex: Female

DRUGS (11)
  1. KENZEN [Suspect]
     Indication: MYOCARDIAL INFARCTION
     Route: 048
     Dates: start: 20060101
  2. OMEPRAZOLE [Suspect]
     Route: 065
     Dates: start: 20060101
  3. KARDEGIC [Suspect]
     Indication: MYOCARDIAL INFARCTION
     Route: 048
     Dates: start: 20060101
  4. KARDEGIC [Suspect]
     Route: 048
  5. KALEORID [Suspect]
     Indication: MYOCARDIAL INFARCTION
     Route: 048
     Dates: start: 20060101
  6. PLAVIX [Suspect]
     Indication: MYOCARDIAL INFARCTION
     Route: 048
     Dates: start: 20060101
  7. CARDENSIEL [Suspect]
     Indication: MYOCARDIAL INFARCTION
     Route: 048
     Dates: start: 20060101
  8. LASIX [Suspect]
     Indication: MYOCARDIAL INFARCTION
     Route: 048
     Dates: start: 20060101
  9. INEGY [Suspect]
     Indication: MYOCARDIAL INFARCTION
     Route: 048
     Dates: start: 20060101
  10. MOLSIDOMINE [Concomitant]
     Indication: MYOCARDIAL INFARCTION
     Route: 048
  11. DOMPERIDONE [Concomitant]
     Indication: DRUG USE FOR UNKNOWN INDICATION
     Route: 065

REACTIONS (1)
  - APHTHOUS STOMATITIS [None]
